FAERS Safety Report 6315278-7 (Version None)
Quarter: 2009Q3

REPORT INFORMATION
  Report Type: 
  Country: None (occurrence: None)
  Receive Date: 20090817
  Receipt Date: 20090803
  Transmission Date: 20100115
  Serious: Yes (Disabling, Other)
  Sender: FDA-Public Use
  Company Number: 2009AP002309

PATIENT
  Sex: Male

DRUGS (11)
  1. RISPERIDONE [Suspect]
  2. DIAZEPAM [Suspect]
  3. CLOPIXOL                (ZUCLOPENTHIXOL) [Suspect]
  4. HALOPERIDOL [Suspect]
  5. ANTIPSYCHOTICS (ANTIPSYCHOTICS) [Concomitant]
  6. PARACETAMOL (PARACETAMOL) [Concomitant]
  7. CLOZAPINE [Concomitant]
  8. FLUOXETINE HCL [Concomitant]
  9. PSEUDOEPHEDRINE HCL [Concomitant]
  10. SULPIRIDE (SULPIRIDE) [Concomitant]
  11. PROCYCLIDINE HYDROCHLORIDE 2MG TAB [Concomitant]

REACTIONS (24)
  - ABASIA [None]
  - ABDOMINAL PAIN UPPER [None]
  - AGITATION [None]
  - AKATHISIA [None]
  - APATHY [None]
  - CONDITION AGGRAVATED [None]
  - DELUSION [None]
  - DEPRESSED MOOD [None]
  - DISTURBANCE IN ATTENTION [None]
  - DRUG WITHDRAWAL SYNDROME [None]
  - DYSARTHRIA [None]
  - DYSKINESIA [None]
  - GRIMACING [None]
  - HALLUCINATION [None]
  - INDIFFERENCE [None]
  - INSOMNIA [None]
  - LIP EXFOLIATION [None]
  - NEUROLEPTIC MALIGNANT SYNDROME [None]
  - PROTRUSION TONGUE [None]
  - PSYCHOTIC DISORDER [None]
  - QUALITY OF LIFE DECREASED [None]
  - SALIVARY HYPERSECRETION [None]
  - TREMOR [None]
  - URINARY INCONTINENCE [None]
